FAERS Safety Report 20324977 (Version 3)
Quarter: 2022Q1

REPORT INFORMATION
  Report Type: Spontaneous
  Country: CA (occurrence: CA)
  Receive Date: 20220111
  Receipt Date: 20220307
  Transmission Date: 20220423
  Serious: Yes (Death, Other)
  Sender: FDA-Public Use
  Company Number: CA-SA-SAC20211227000027

PATIENT
  Age: 80 Year
  Sex: Male
  Weight: 69 kg

DRUGS (154)
  1. BISACODYL [Suspect]
     Active Substance: BISACODYL
     Indication: Constipation
     Dosage: UNK
  2. BISACODYL [Suspect]
     Active Substance: BISACODYL
     Indication: Ventricular fibrillation
     Dosage: UNK
  3. BISACODYL [Suspect]
     Active Substance: BISACODYL
     Indication: Drug therapy
     Dosage: 10 MG, PRN
     Route: 054
  4. BISACODYL [Suspect]
     Active Substance: BISACODYL
     Dosage: 10 MG
     Route: 054
  5. BISACODYL [Suspect]
     Active Substance: BISACODYL
     Dosage: UNK
  6. BISACODYL [Suspect]
     Active Substance: BISACODYL
     Dosage: 10 MG
     Route: 054
  7. ALLOPURINOL [Suspect]
     Active Substance: ALLOPURINOL
     Indication: Blood uric acid increased
     Dosage: 100 MG, QD
     Route: 048
  8. ATROVENT [Suspect]
     Active Substance: IPRATROPIUM BROMIDE
     Indication: Sleep disorder therapy
     Dosage: 1 DF, Q6H
     Route: 050
  9. ATROVENT [Suspect]
     Active Substance: IPRATROPIUM BROMIDE
     Indication: Dyspnoea
  10. BETAMETHASONE [Suspect]
     Active Substance: BETAMETHASONE
     Indication: Swelling
     Dosage: UNK
  11. BETAMETHASONE [Suspect]
     Active Substance: BETAMETHASONE
     Dosage: UNK
     Route: 061
  12. HEPARIN SODIUM [Suspect]
     Active Substance: HEPARIN SODIUM
     Indication: Anticoagulant therapy
     Dosage: 50 ML, QD
     Route: 042
  13. HEPARIN SODIUM [Suspect]
     Active Substance: HEPARIN SODIUM
     Indication: Off label use
     Dosage: 250 ML
     Route: 042
  14. HEPARIN SODIUM [Suspect]
     Active Substance: HEPARIN SODIUM
     Indication: Intentional product misuse
     Dosage: 50 ML, PRN
     Route: 042
  15. DISTIGMINE BROMIDE [Suspect]
     Active Substance: DISTIGMINE BROMIDE
     Indication: Dyspnoea
     Dosage: 1 U, QD
     Route: 048
  16. DISTIGMINE BROMIDE [Suspect]
     Active Substance: DISTIGMINE BROMIDE
     Dosage: 1 U, QD
     Route: 048
  17. DOBUTAMINE [Suspect]
     Active Substance: DOBUTAMINE HYDROCHLORIDE
     Indication: Cardiogenic shock
     Dosage: UNK
     Route: 042
  18. DOBUTAMINE [Suspect]
     Active Substance: DOBUTAMINE HYDROCHLORIDE
     Dosage: UNK
  19. CEFTRIAXONE SODIUM [Suspect]
     Active Substance: CEFTRIAXONE SODIUM
     Indication: Bacterial infection
     Dosage: 2 G, QD
     Route: 042
  20. CEFTRIAXONE SODIUM [Suspect]
     Active Substance: CEFTRIAXONE SODIUM
     Dosage: UNK
  21. CEFTRIAXONE SODIUM [Suspect]
     Active Substance: CEFTRIAXONE SODIUM
  22. DEXTROSE [Suspect]
     Active Substance: DEXTROSE
     Indication: Nutritional supplementation
     Dosage: 12.5 MG
     Route: 042
  23. DEXTROSE [Suspect]
     Active Substance: DEXTROSE
     Dosage: 12.5 MG
     Route: 042
  24. GABAPENTIN [Suspect]
     Active Substance: GABAPENTIN
     Indication: Neuralgia
     Dosage: 100 MG, QD
     Route: 048
  25. GABAPENTIN [Suspect]
     Active Substance: GABAPENTIN
     Indication: Bacterial infection
     Dosage: UNK
  26. GABAPENTIN [Suspect]
     Active Substance: GABAPENTIN
     Dosage: 100 MG, QD
     Route: 048
  27. ONDANSETRON [Suspect]
     Active Substance: ONDANSETRON
     Indication: Vomiting
     Dosage: 4 MG, QD
     Route: 042
  28. ONDANSETRON [Suspect]
     Active Substance: ONDANSETRON
     Indication: Nausea
     Dosage: 4 MG
     Route: 042
  29. ONDANSETRON [Suspect]
     Active Substance: ONDANSETRON
     Dosage: 41.14 MG
     Route: 042
  30. ONDANSETRON [Suspect]
     Active Substance: ONDANSETRON
     Dosage: 40 MG, Q8H
     Route: 042
  31. ONDANSETRON [Suspect]
     Active Substance: ONDANSETRON
     Dosage: 36 MG, Q8H
     Route: 042
  32. ONDANSETRON [Suspect]
     Active Substance: ONDANSETRON
     Dosage: 12 MG, Q8H
     Route: 042
  33. ONDANSETRON [Suspect]
     Active Substance: ONDANSETRON
     Dosage: 40 MG, Q8H
     Route: 042
  34. ONDANSETRON [Suspect]
     Active Substance: ONDANSETRON
     Dosage: 41.4 MG, Q8H
     Route: 042
  35. ONDANSETRON [Suspect]
     Active Substance: ONDANSETRON
     Dosage: 1 DF, Q8H
     Route: 042
  36. ONDANSETRON [Suspect]
     Active Substance: ONDANSETRON
     Dosage: 12 MG, Q8H
     Route: 042
  37. ONDANSETRON [Suspect]
     Active Substance: ONDANSETRON
     Dosage: 36 MG, Q8H
     Route: 042
  38. SODIUM PICOSULFATE [Suspect]
     Active Substance: SODIUM PICOSULFATE
     Indication: Constipation
     Dosage: 10 MG
     Route: 054
  39. DULCOLAX NOS [Suspect]
     Active Substance: BISACODYL OR DOCUSATE SODIUM
     Indication: Constipation
     Dosage: 10 MG
     Route: 054
  40. HYDROMORPHONE [Suspect]
     Active Substance: HYDROMORPHONE
     Indication: Analgesic therapy
     Dosage: 1 MG, Q4H
     Route: 058
  41. HYDROMORPHONE [Suspect]
     Active Substance: HYDROMORPHONE
     Dosage: 6 MG, Q5H
     Route: 058
  42. HYDROMORPHONE [Suspect]
     Active Substance: HYDROMORPHONE
     Dosage: 6 MG, Q4H
     Route: 058
  43. HYDROMORPHONE [Suspect]
     Active Substance: HYDROMORPHONE
  44. SIMVASTATIN [Suspect]
     Active Substance: SIMVASTATIN
     Indication: Blood cholesterol increased
     Dosage: 40 MG, QD
     Route: 048
  45. SIMVASTATIN [Suspect]
     Active Substance: SIMVASTATIN
     Indication: Vitamin supplementation
  46. SIMVASTATIN [Suspect]
     Active Substance: SIMVASTATIN
     Indication: Off label use
  47. AMIODARONE HYDROCHLORIDE [Suspect]
     Active Substance: AMIODARONE HYDROCHLORIDE
     Indication: Ventricular fibrillation
     Dosage: 150 MG, QD
     Route: 042
  48. IPRATROPIUM BROMIDE [Suspect]
     Active Substance: IPRATROPIUM BROMIDE
     Indication: Dyspnoea
     Dosage: 1 DF, Q6H
     Route: 055
  49. IPRATROPIUM BROMIDE [Suspect]
     Active Substance: IPRATROPIUM BROMIDE
     Indication: Sleep disorder therapy
     Dosage: 1 DF, QD
     Route: 055
  50. IPRATROPIUM BROMIDE [Suspect]
     Active Substance: IPRATROPIUM BROMIDE
     Indication: Intentional product misuse
     Dosage: 4 DF, QD
     Route: 055
  51. INSULIN ASPART [Suspect]
     Active Substance: INSULIN ASPART
     Indication: Diabetes mellitus
     Dosage: UNK
     Route: 058
  52. LANSOPRAZOLE [Suspect]
     Active Substance: LANSOPRAZOLE
     Indication: Antacid therapy
     Dosage: 30 MG, QD
     Route: 048
  53. METRONIDAZOLE [Suspect]
     Active Substance: METRONIDAZOLE
     Indication: Bacterial infection
     Dosage: 500 MG, QD
     Route: 048
  54. METRONIDAZOLE [Suspect]
     Active Substance: METRONIDAZOLE
     Dosage: 500 MG, QD
     Route: 048
  55. NOREPINEPHRINE [Suspect]
     Active Substance: NOREPINEPHRINE
     Indication: Stress
     Dosage: UNK DF
     Route: 042
  56. NOREPINEPHRINE [Suspect]
     Active Substance: NOREPINEPHRINE
     Indication: Intentional product misuse
     Dosage: 1 DF
  57. NOREPINEPHRINE [Suspect]
     Active Substance: NOREPINEPHRINE
     Indication: Off label use
     Dosage: 3 MG, QD
     Route: 048
  58. PYRIDOXINE HYDROCHLORIDE [Suspect]
     Active Substance: PYRIDOXINE HYDROCHLORIDE
     Indication: Vitamin supplementation
     Route: 048
  59. PYRIDOXINE HYDROCHLORIDE [Suspect]
     Active Substance: PYRIDOXINE HYDROCHLORIDE
  60. WARFARIN SODIUM [Suspect]
     Active Substance: WARFARIN SODIUM
     Indication: Thrombosis
     Dosage: 2 ML, QD
  61. WARFARIN SODIUM [Suspect]
     Active Substance: WARFARIN SODIUM
     Dosage: 2 ML, QD
  62. WARFARIN SODIUM [Suspect]
     Active Substance: WARFARIN SODIUM
     Dosage: 2 ML, QD
  63. POTASSIUM CHLORIDE [Suspect]
     Active Substance: POTASSIUM CHLORIDE
     Indication: Product used for unknown indication
     Dosage: 17 G, QD
     Route: 048
  64. POTASSIUM CHLORIDE [Suspect]
     Active Substance: POTASSIUM CHLORIDE
     Dosage: UNK
  65. FLUTICASONE FUROATE [Suspect]
     Active Substance: FLUTICASONE FUROATE
     Indication: Nutritional supplementation
     Dosage: UNK
  66. PHYTONADIONE [Suspect]
     Active Substance: PHYTONADIONE
     Indication: Vitamin supplementation
     Dosage: 5 MG, QD
     Route: 042
  67. PHYTONADIONE [Suspect]
     Active Substance: PHYTONADIONE
     Dosage: 5 MG, QD
     Route: 042
  68. TOCOPHEROL [Suspect]
     Active Substance: TOCOPHEROL
     Indication: Nutritional supplementation
     Dosage: 12.5 G
     Route: 042
  69. TOCOPHEROL [Suspect]
     Active Substance: TOCOPHEROL
     Dosage: 12.5 G, QD
     Route: 042
  70. AMIODARONE HYDROCHLORIDE [Suspect]
     Active Substance: AMIODARONE HYDROCHLORIDE
     Dosage: 150 MG, QD
     Route: 042
  71. AMIODARONE HYDROCHLORIDE [Suspect]
     Active Substance: AMIODARONE HYDROCHLORIDE
     Dosage: 150 MG, QD
     Route: 042
  72. AMIODARONE HYDROCHLORIDE [Suspect]
     Active Substance: AMIODARONE HYDROCHLORIDE
     Dosage: 150 MG, QD
     Route: 042
  73. AMIODARONE HYDROCHLORIDE [Suspect]
     Active Substance: AMIODARONE HYDROCHLORIDE
     Dosage: 150 MG, QD
     Route: 042
  74. AMIODARONE HYDROCHLORIDE [Suspect]
     Active Substance: AMIODARONE HYDROCHLORIDE
     Dosage: 150 MG, QD
     Route: 042
  75. SODIUM FERRIC GLUCONATE COMPLEX [Suspect]
     Active Substance: SODIUM FERRIC GLUCONATE COMPLEX
     Indication: Iron deficiency
     Dosage: 125 MG, Q4W
     Route: 042
  76. SODIUM FERRIC GLUCONATE COMPLEX [Suspect]
     Active Substance: SODIUM FERRIC GLUCONATE COMPLEX
     Dosage: 4.64 MG, Q4W
     Route: 042
  77. POLYETHYLENE GLYCOLS [Suspect]
     Active Substance: POLYETHYLENE GLYCOLS
     Indication: Constipation
     Dosage: 17 G
     Route: 048
  78. POLYETHYLENE GLYCOLS [Suspect]
     Active Substance: POLYETHYLENE GLYCOLS
     Dosage: UNK, QD
     Route: 048
  79. POLYETHYLENE GLYCOLS [Suspect]
     Active Substance: POLYETHYLENE GLYCOLS
     Dosage: 17 G, QD
     Route: 048
  80. POLYETHYLENE GLYCOLS [Suspect]
     Active Substance: POLYETHYLENE GLYCOLS
  81. ALBUTEROL [Suspect]
     Active Substance: ALBUTEROL
     Indication: Chronic obstructive pulmonary disease
     Dosage: 1 DF, Q6H
     Route: 055
  82. ALBUTEROL [Suspect]
     Active Substance: ALBUTEROL
     Dosage: UNK, Q6H
     Route: 055
  83. HOMEOPATHICS [Suspect]
     Active Substance: HOMEOPATHICS
     Indication: Constipation
     Dosage: 17 G, QD
     Route: 048
  84. ARANESP [Suspect]
     Active Substance: DARBEPOETIN ALFA
     Indication: Anaemia
     Dosage: 10 MG, QOW
     Route: 042
  85. ARANESP [Suspect]
     Active Substance: DARBEPOETIN ALFA
     Dosage: 0.2 UG, QW
     Route: 042
  86. ARANESP [Suspect]
     Active Substance: DARBEPOETIN ALFA
     Dosage: 0.71 MG, QW
     Route: 042
  87. ARANESP [Suspect]
     Active Substance: DARBEPOETIN ALFA
     Dosage: 0.71 MG, QOW
     Route: 042
  88. ARANESP [Suspect]
     Active Substance: DARBEPOETIN ALFA
     Dosage: 0.71 UG, QOW
     Route: 042
  89. ARANESP [Suspect]
     Active Substance: DARBEPOETIN ALFA
     Dosage: 0.71 UG, QOW
     Route: 042
  90. ARANESP [Suspect]
     Active Substance: DARBEPOETIN ALFA
     Dosage: 1.42 UG, QW
     Route: 042
  91. ARANESP [Suspect]
     Active Substance: DARBEPOETIN ALFA
     Dosage: 1.42 UG, QW
     Route: 042
  92. ACETAMINOPHEN [Suspect]
     Active Substance: ACETAMINOPHEN
     Indication: Analgesic therapy
     Dosage: 650 G, QD
     Route: 048
  93. MINERALS\VITAMINS [Suspect]
     Active Substance: MINERALS\VITAMINS
     Indication: Vitamin supplementation
     Dosage: 5 MG, QD
     Route: 042
  94. CALCITRIOL [Suspect]
     Active Substance: CALCITRIOL
     Indication: Vitamin D
     Dosage: 0.25 UG, QD
     Route: 048
  95. CHLORAMPHENICOL\HYDROCORTISONE ACETATE\METRONIDAZOLE\NYSTATIN [Suspect]
     Active Substance: CHLORAMPHENICOL\HYDROCORTISONE ACETATE\METRONIDAZOLE\NYSTATIN
     Indication: Anaemia
     Dosage: 500 MG, Q8H
  96. DALTEPARIN SODIUM [Suspect]
     Active Substance: DALTEPARIN SODIUM
     Indication: Pulmonary embolism
     Route: 048
  97. DALTEPARIN SODIUM [Suspect]
     Active Substance: DALTEPARIN SODIUM
     Dosage: UNK
  98. DEXTROSE [Suspect]
     Active Substance: DEXTROSE
     Indication: Nutritional supplementation
     Dosage: 12.5 MG
     Route: 042
  99. DIPYRONE [Suspect]
     Active Substance: DIPYRONE
     Indication: Vitamin supplementation
     Dosage: 5 MG
     Route: 042
  100. FLUTICASONE FUROATE\VILANTEROL TRIFENATATE [Suspect]
     Active Substance: FLUTICASONE FUROATE\VILANTEROL TRIFENATATE
     Indication: Product used for unknown indication
     Dosage: UNK
  101. INSULIN DEGLUDEC [Suspect]
     Active Substance: INSULIN DEGLUDEC
     Indication: Diabetes mellitus
     Route: 058
  102. INSULIN DEGLUDEC [Suspect]
     Active Substance: INSULIN DEGLUDEC
     Dosage: UNK
  103. LANTHANUM CARBONATE [Suspect]
     Active Substance: LANTHANUM CARBONATE
     Indication: Blood phosphorus increased
     Dosage: 500 MG, QD
     Route: 048
  104. LANTHANUM CARBONATE [Suspect]
     Active Substance: LANTHANUM CARBONATE
     Indication: Off label use
     Dosage: 500 MG, PRN
     Route: 048
  105. LANTHANUM CARBONATE [Suspect]
     Active Substance: LANTHANUM CARBONATE
     Indication: Hyperphosphataemia
  106. POLYETHYLENE GLYCOL 3350 [Suspect]
     Active Substance: POLYETHYLENE GLYCOL 3350
     Indication: Constipation
     Dosage: 17 G, QD
     Route: 048
  107. MELATONIN [Suspect]
     Active Substance: MELATONIN
     Indication: Sleep disorder
     Dosage: 3 MG, QW
     Route: 048
  108. OSELTAMIVIR PHOSPHATE [Suspect]
     Active Substance: OSELTAMIVIR PHOSPHATE
     Indication: Product used for unknown indication
     Dosage: 133 ML
     Route: 054
  109. HERBALS\PAULLINIA CUPANA SEED [Suspect]
     Active Substance: HERBALS\PAULLINIA CUPANA SEED
     Indication: Nutritional supplementation
     Dosage: 12.5 MG
     Route: 042
  110. POLYETHYLENE GLYCOL 4000 [Suspect]
     Active Substance: POLYETHYLENE GLYCOL 4000
     Indication: Constipation
     Dosage: 17 MG
     Route: 048
  111. SODIUM CITRATE [Suspect]
     Active Substance: SODIUM CITRATE
     Indication: Thrombosis
     Dosage: 2.5 ML
  112. SODIUM FERRIC GLUCONATE COMPLEX [Suspect]
     Active Substance: SODIUM FERRIC GLUCONATE COMPLEX
     Indication: Iron deficiency
     Dosage: 125 MG, Q4W
     Route: 042
  113. SODIUM FERRIC GLUCONATE COMPLEX [Suspect]
     Active Substance: SODIUM FERRIC GLUCONATE COMPLEX
     Dosage: 4.64 MG, Q4W
     Route: 042
  114. SODIUM PHOSPHATE [Suspect]
     Active Substance: SODIUM PHOSPHATE
     Indication: Constipation
     Dosage: 133 ML
     Route: 054
  115. UMECLIDINIUM BROMIDE [Suspect]
     Active Substance: UMECLIDINIUM BROMIDE
     Indication: Dyspnoea
     Dosage: 1 U, QD
     Route: 048
  116. VASOPRESSIN [Suspect]
     Active Substance: VASOPRESSIN
     Indication: Drug therapy
     Dosage: 50 ML, QD
     Route: 042
  117. VILANTEROL TRIFENATATE [Suspect]
     Active Substance: VILANTEROL TRIFENATATE
     Indication: Dyspnoea
     Dosage: 1 U, QD
  118. VITAMIN C [Suspect]
     Active Substance: ASCORBIC ACID
     Indication: Constipation
     Dosage: 17 G, QD
     Route: 048
  119. POLYETHYLENE GLYCOL 3350\POTASSIUM\SODIUM CHLORIDE\SODIUM SULFATE [Suspect]
     Active Substance: POLYETHYLENE GLYCOL 3350\POTASSIUM\SODIUM CHLORIDE\SODIUM SULFATE
     Indication: Constipation
     Dosage: 17 G, QD
  120. SODIUM PHOSPHATE, MONOBASIC [Suspect]
     Active Substance: SODIUM PHOSPHATE, MONOBASIC
     Indication: Constipation
     Dosage: 133 MG
     Route: 054
  121. VITAMIN K1 [Suspect]
     Active Substance: PHYTONADIONE
     Indication: Vitamin supplementation
     Dosage: 5 MG
     Route: 042
  122. VITAMIN K1 [Suspect]
     Active Substance: PHYTONADIONE
     Dosage: 5 MG
     Route: 042
  123. VITAMIN K1 [Suspect]
     Active Substance: PHYTONADIONE
     Dosage: 5 MG
     Route: 042
  124. XANTOFYL PALMITATE [Suspect]
     Active Substance: XANTOFYL PALMITATE
     Indication: Nutritional supplementation
     Dosage: 12.5 G
     Route: 042
  125. DIETARY SUPPLEMENT [Suspect]
     Active Substance: DIETARY SUPPLEMENT
     Indication: Vitamin supplementation
     Dosage: 5 MG, QD
     Route: 042
  126. AMMONIUM CHLORIDE\CHLORPHENIRAMINE\SODIUM CITRATE [Suspect]
     Active Substance: AMMONIUM CHLORIDE\CHLORPHENIRAMINE\SODIUM CITRATE
     Indication: Product used for unknown indication
     Dosage: 2.5 ML, QD
     Route: 048
  127. CARBOHYDRATES\FATTY ACIDS\MINERALS\PROTEIN\VITAMINS [Suspect]
     Active Substance: CARBOHYDRATES\FATTY ACIDS\MINERALS\PROTEIN\VITAMINS
     Indication: Vitamin supplementation
     Dosage: 5 MG, QD
  128. CARBOHYDRATES\FATTY ACIDS\MINERALS\PROTEIN\VITAMINS [Suspect]
     Active Substance: CARBOHYDRATES\FATTY ACIDS\MINERALS\PROTEIN\VITAMINS
     Dosage: 5 MG, QD
  129. CARBOHYDRATES\FATTY ACIDS\MINERALS\PROTEIN\VITAMINS [Suspect]
     Active Substance: CARBOHYDRATES\FATTY ACIDS\MINERALS\PROTEIN\VITAMINS
     Dosage: 5 MG, QD
  130. FENOTEROL HYDROBROMIDE\IPRATROPIUM BROMIDE [Suspect]
     Active Substance: FENOTEROL HYDROBROMIDE\IPRATROPIUM BROMIDE
     Indication: Dyspnoea
     Dosage: 4 IU, QD
  131. FENOTEROL HYDROBROMIDE\IPRATROPIUM BROMIDE [Suspect]
     Active Substance: FENOTEROL HYDROBROMIDE\IPRATROPIUM BROMIDE
     Dosage: UNK
  132. FENOTEROL HYDROBROMIDE\IPRATROPIUM BROMIDE [Suspect]
     Active Substance: FENOTEROL HYDROBROMIDE\IPRATROPIUM BROMIDE
     Dosage: UNK
  133. FENOTEROL HYDROBROMIDE\IPRATROPIUM BROMIDE [Suspect]
     Active Substance: FENOTEROL HYDROBROMIDE\IPRATROPIUM BROMIDE
     Dosage: UNK, Q8H
  134. FENOTEROL HYDROBROMIDE\IPRATROPIUM BROMIDE [Suspect]
     Active Substance: FENOTEROL HYDROBROMIDE\IPRATROPIUM BROMIDE
     Dosage: UNK
  135. IPRATROPIUM BROMIDE\XYLOMETAZOLINE HYDROCHLORIDE [Suspect]
     Active Substance: IPRATROPIUM BROMIDE\XYLOMETAZOLINE HYDROCHLORIDE
     Indication: Dyspnoea
     Dosage: UNK
     Route: 055
  136. IPRATROPIUM BROMIDE\XYLOMETAZOLINE HYDROCHLORIDE [Suspect]
     Active Substance: IPRATROPIUM BROMIDE\XYLOMETAZOLINE HYDROCHLORIDE
     Dosage: UNK
  137. VITAMIN C [Concomitant]
     Active Substance: ASCORBIC ACID
     Indication: Product used for unknown indication
     Dosage: UNK
  138. VITAMIN C [Concomitant]
     Active Substance: ASCORBIC ACID
     Indication: Vitamin supplementation
  139. POTASSIUM CHLORIDE [Concomitant]
     Active Substance: POTASSIUM CHLORIDE
     Indication: Constipation
     Dosage: 17 MG, QD
     Route: 048
  140. DOBUTAMINE [Concomitant]
     Active Substance: DOBUTAMINE HYDROCHLORIDE
     Indication: Cardiogenic shock
     Dosage: UNK
     Route: 042
  141. RIBOFLAVIN 5^-PHOSPHATE SODIUM [Concomitant]
     Active Substance: RIBOFLAVIN 5^-PHOSPHATE SODIUM
     Indication: Product used for unknown indication
     Dosage: UNK
     Route: 048
  142. RIBOFLAVIN 5^-PHOSPHATE SODIUM [Concomitant]
     Active Substance: RIBOFLAVIN 5^-PHOSPHATE SODIUM
     Dosage: 17 G, QD
     Route: 065
  143. BETA CAROTENE [Concomitant]
     Active Substance: BETA CAROTENE
     Indication: Product used for unknown indication
     Dosage: 12.5 G
  144. BETA CAROTENE [Concomitant]
     Active Substance: BETA CAROTENE
     Indication: Nutritional supplementation
  145. HYDROMORPHONE [Concomitant]
     Active Substance: HYDROMORPHONE
     Indication: Analgesic therapy
     Dosage: 24 MG, Q4H
     Route: 058
  146. HYDROMORPHONE [Concomitant]
     Active Substance: HYDROMORPHONE
     Dosage: 24 MG, Q4H
     Route: 058
  147. HYDROMORPHONE [Concomitant]
     Active Substance: HYDROMORPHONE
     Dosage: 4 MG, Q4H
     Route: 058
  148. POTASSIUM CHLORATE [Concomitant]
     Active Substance: POTASSIUM CHLORATE
     Indication: Product used for unknown indication
     Dosage: UNK
  149. ALBUTEROL [Concomitant]
     Active Substance: ALBUTEROL
     Indication: Chronic obstructive pulmonary disease
     Dosage: UNK
  150. SIMVASTATIN [Concomitant]
     Active Substance: SIMVASTATIN
     Indication: Product used for unknown indication
     Dosage: UNK
  151. SIMVASTATIN [Concomitant]
     Active Substance: SIMVASTATIN
     Indication: Blood cholesterol increased
  152. DISODIUM HYDROGEN CITRATE [Concomitant]
     Active Substance: DISODIUM HYDROGEN CITRATE
     Indication: Thrombosis
     Dosage: 2.5 ML, QD
  153. UMECLIDINIUM BROMIDE\VILANTEROL TRIFENATATE [Concomitant]
     Active Substance: UMECLIDINIUM BROMIDE\VILANTEROL TRIFENATATE
     Indication: Product used for unknown indication
     Dosage: 1 IU, QD
     Route: 048
  154. UMECLIDINIUM BROMIDE\VILANTEROL TRIFENATATE [Concomitant]
     Active Substance: UMECLIDINIUM BROMIDE\VILANTEROL TRIFENATATE
     Indication: Dyspnoea
     Dosage: 1 IU, QD
     Route: 048

REACTIONS (17)
  - Ventricular fibrillation [Fatal]
  - Constipation [Fatal]
  - Abdominal distension [Fatal]
  - Abdominal pain [Fatal]
  - Appendicitis [Fatal]
  - Appendicolith [Fatal]
  - Ascites [Fatal]
  - Cardiogenic shock [Fatal]
  - General physical health deterioration [Fatal]
  - Hyponatraemia [Fatal]
  - Multiple organ dysfunction syndrome [Fatal]
  - Nausea [Fatal]
  - Sepsis [Fatal]
  - Stress [Fatal]
  - Vomiting [Fatal]
  - Blood phosphorus increased [Fatal]
  - Off label use [Fatal]
